FAERS Safety Report 5235968-7 (Version None)
Quarter: 2007Q1

REPORT INFORMATION
  Report Type: 
  Country: None (occurrence: None)
  Receive Date: 20061208
  Receipt Date: 20051221
  Transmission Date: 20070707
  Serious: Yes (Other)
  Sender: FDA-Public Use
  Company Number: 2005UW19235

PATIENT
  Age: 51 Year
  Sex: Female

DRUGS (2)
  1. CRESTOR [Suspect]
     Indication: BLOOD CHOLESTEROL INCREASED
     Dosage: 10 MG TIWK
  2. NASONEX [Concomitant]

REACTIONS (2)
  - ALOPECIA [None]
  - INSOMNIA [None]
